FAERS Safety Report 5624370-1 (Version None)
Quarter: 2008Q1

REPORT INFORMATION
  Report Type: 
  Country: None (occurrence: None)
  Receive Date: 20080213
  Receipt Date: 20080201
  Transmission Date: 20080703
  Serious: Yes (Other)
  Sender: FDA-Public Use
  Company Number: US-ASTRAZENECA-2006UW25778

PATIENT
  Age: 46 Year
  Sex: Male
  Weight: 168.2 kg

DRUGS (5)
  1. SEROQUEL [Suspect]
     Indication: DEPRESSION
     Route: 048
     Dates: start: 20000101, end: 20060101
  2. HALDOL [Concomitant]
  3. ZYPREXA [Concomitant]
     Dosage: 5 MG TO 15 MG
     Dates: start: 19970401, end: 20070101
  4. ATIVAN [Concomitant]
  5. BENADRYL [Concomitant]

REACTIONS (5)
  - BLOOD CHOLESTEROL INCREASED [None]
  - BLOOD TRIGLYCERIDES INCREASED [None]
  - DIABETES MELLITUS [None]
  - OBESITY [None]
  - TOE AMPUTATION [None]
